FAERS Safety Report 13994787 (Version 1)
Quarter: 2017Q3

REPORT INFORMATION
  Report Type: Spontaneous
  Country: US (occurrence: None)
  Receive Date: 20170921
  Receipt Date: 20170921
  Transmission Date: 20171128
  Serious: Yes (Death, Hospitalization)
  Sender: FDA-Public Use
  Company Number: None

PATIENT
  Age: 71 Year
  Sex: Male
  Weight: 102.5 kg

DRUGS (19)
  1. COLACE [Concomitant]
     Active Substance: DOCUSATE SODIUM
  2. PEPCID [Concomitant]
     Active Substance: FAMOTIDINE
  3. HYDROCODONE-ACETAMINOPHEN [Concomitant]
     Active Substance: ACETAMINOPHEN\HYDROCODONE
  4. HUMALOG [Concomitant]
     Active Substance: INSULIN LISPRO
  5. SENOKOT [Concomitant]
     Active Substance: SENNOSIDES
  6. ZOFRAN [Concomitant]
     Active Substance: ONDANSETRON HYDROCHLORIDE
  7. AMBIEN [Concomitant]
     Active Substance: ZOLPIDEM TARTRATE
  8. LOVENOX [Concomitant]
     Active Substance: ENOXAPARIN SODIUM
  9. ARMODAFINIL. [Suspect]
     Active Substance: ARMODAFINIL
     Dosage: TOTAL DOSE ADMINISTERED - 33 UNIT
     Dates: end: 20170910
  10. BD INSULIN SYRINGE HALF UNIT [Concomitant]
  11. LANTUS [Concomitant]
     Active Substance: INSULIN GLARGINE
  12. AVASTIN [Concomitant]
     Active Substance: BEVACIZUMAB
  13. LIPITOR [Concomitant]
     Active Substance: ATORVASTATIN CALCIUM
  14. COMPAZINE [Concomitant]
     Active Substance: PROCHLORPERAZINE MALEATE
  15. DEXAMETHASONE. [Concomitant]
     Active Substance: DEXAMETHASONE
  16. ATIVAN [Concomitant]
     Active Substance: LORAZEPAM
  17. GLUCOSE BLOOD [Concomitant]
  18. KEPPRA [Concomitant]
     Active Substance: LEVETIRACETAM
  19. NEUPOGEN [Concomitant]
     Active Substance: FILGRASTIM

REACTIONS (11)
  - Pulse absent [None]
  - Pyrexia [None]
  - Sepsis [None]
  - Asthenia [None]
  - Respiratory distress [None]
  - Unresponsive to stimuli [None]
  - Condition aggravated [None]
  - Pupil fixed [None]
  - Headache [None]
  - Respiratory arrest [None]
  - Decreased appetite [None]

NARRATIVE: CASE EVENT DATE: 20170911
